FAERS Safety Report 14345903 (Version 4)
Quarter: 2019Q1

REPORT INFORMATION
  Report Type: Report from Study
  Country: US (occurrence: US)
  Receive Date: 20180103
  Receipt Date: 20190207
  Transmission Date: 20190417
  Serious: Yes (Hospitalization, Other)
  Sender: FDA-Public Use
  Company Number: US-JNJFOC-20170903704

PATIENT
  Age: 64 Year
  Sex: Male
  Weight: 136 kg

DRUGS (13)
  1. MULTIVITAMINS [Concomitant]
     Active Substance: VITAMINS
  2. TURMERIC [Concomitant]
     Active Substance: HERBALS\TURMERIC
  3. SERENOA REPENS [Concomitant]
     Active Substance: SERENOA REPENS WHOLE
  4. TYLENOL [Concomitant]
     Active Substance: ACETAMINOPHEN
  5. DILTIAZEM. [Concomitant]
     Active Substance: DILTIAZEM
  6. IMBRUVICA [Suspect]
     Active Substance: IBRUTINIB
     Indication: CHRONIC LYMPHOCYTIC LEUKAEMIA
     Route: 048
     Dates: start: 20170714
  7. BREO ELLIPTA [Concomitant]
     Active Substance: FLUTICASONE FUROATE\VILANTEROL TRIFENATATE
  8. VITAMIN D3 [Concomitant]
     Active Substance: CHOLECALCIFEROL
  9. FUROSEMIDE. [Concomitant]
     Active Substance: FUROSEMIDE
  10. ALBUTEROL. [Concomitant]
     Active Substance: ALBUTEROL
  11. IPRATROPIUM [Concomitant]
     Active Substance: IPRATROPIUM
  12. IMBRUVICA [Suspect]
     Active Substance: IBRUTINIB
     Indication: CHRONIC LYMPHOCYTIC LEUKAEMIA
     Route: 048
     Dates: start: 20170707, end: 20170828
  13. LOSARTAN. [Concomitant]
     Active Substance: LOSARTAN

REACTIONS (5)
  - Tricuspid valve incompetence [Unknown]
  - Right ventricular enlargement [Unknown]
  - Pulmonary hypertension [Unknown]
  - Cardiac failure congestive [Unknown]
  - Atrial fibrillation [Recovering/Resolving]

NARRATIVE: CASE EVENT DATE: 20170822
